FAERS Safety Report 4343431-0 (Version None)
Quarter: 2004Q2

REPORT INFORMATION
  Report Type: 
  Country: None (occurrence: None)
  Receive Date: 20040419
  Receipt Date: 20040414
  Transmission Date: 20050107
  Serious: Yes (Other)
  Sender: FDA-Public Use
  Company Number: 2004UW07545

PATIENT
  Age: 14 Year
  Sex: Male

DRUGS (3)
  1. SEROQUEL [Suspect]
     Dosage: 250 MG QD PO
     Route: 048
     Dates: start: 20040401
  2. PAXIL [Concomitant]
  3. TRILEPTAL [Concomitant]

REACTIONS (1)
  - LEUKOPENIA [None]
